FAERS Safety Report 4791948-7 (Version None)
Quarter: 2005Q4

REPORT INFORMATION
  Report Type: 
  Country: None (occurrence: None)
  Receive Date: 20051005
  Receipt Date: 20050628
  Transmission Date: 20060501
  Serious: Yes (Other)
  Sender: FDA-Public Use
  Company Number: 2005085716

PATIENT
  Age: 8 Year
  Sex: Female

DRUGS (1)
  1. VIBRAMYCIN [Suspect]
     Indication: MALARIA PROPHYLAXIS
     Dosage: 100 MG (100 MG, DAILY INTERVAL: EVERY DAY), ORAL
     Route: 048

REACTIONS (1)
  - PHOTOONYCHOLYSIS [None]
